FAERS Safety Report 4645793-3 (Version None)
Quarter: 2005Q2

REPORT INFORMATION
  Report Type: 
  Country: None (occurrence: None)
  Receive Date: 20050422
  Receipt Date: 20050422
  Transmission Date: 20051028
  Serious: Yes (Other)
  Sender: FDA-Public Use
  Company Number: None

PATIENT
  Age: 86 Year
  Sex: Male
  Weight: 106.1 kg

DRUGS (10)
  1. TERAZOSIN [Suspect]
  2. CLOPIDOGREL BISULFATE [Concomitant]
  3. INSULIN NOVOLIN [Concomitant]
  4. METOPROLOL TARTRATE [Concomitant]
  5. HYDROCODONE 5/ACETAMINOPHEN [Concomitant]
  6. FUROSEMIDE [Concomitant]
  7. SYNTHROID [Concomitant]
  8. LISINOPRIL [Concomitant]
  9. NORTRIPTYLINE HCL [Concomitant]
  10. SIMVASTATIN [Concomitant]

REACTIONS (1)
  - HYPOTENSION [None]
